FAERS Safety Report 8965318 (Version 1)
Quarter: 2012Q4

REPORT INFORMATION
  Report Type: 
  Country: US (occurrence: US)
  Receive Date: 20121213
  Receipt Date: 20121213
  Transmission Date: 20130627
  Serious: No
  Sender: FDA-Public Use
  Company Number: US-PFIZER INC-2012310086

PATIENT
  Age: 51 Year
  Sex: Male
  Weight: 111.11 kg

DRUGS (8)
  1. VIAGRA [Suspect]
     Indication: ERECTILE DYSFUNCTION
     Dosage: 100 mg, as needed
     Route: 048
     Dates: start: 2011
  2. NEXIUM [Concomitant]
     Indication: STOMACH ULCER
     Dosage: UNK
  3. LANTUS [Concomitant]
     Indication: DIABETES
     Dosage: UNK
     Dates: start: 2009
  4. HUMALOG [Concomitant]
     Indication: DIABETES
     Dosage: UNK
     Dates: start: 2009
  5. METFORMIN [Concomitant]
     Indication: DIABETES
     Dosage: 1000 mg, 2x/day
  6. ZOLOFT [Concomitant]
     Dosage: 100 mg, UNK
  7. LOTENSIN [Concomitant]
     Indication: BLOOD PRESSURE HIGH
     Dosage: UNK, as needed
  8. LASIX [Concomitant]
     Dosage: UNK

REACTIONS (1)
  - Drug ineffective [Unknown]
